FAERS Safety Report 18641718 (Version 2)
Quarter: 2021Q1

REPORT INFORMATION
  Report Type: Spontaneous
  Country: DE (occurrence: DE)
  Receive Date: 20201221
  Receipt Date: 20210129
  Transmission Date: 20210419
  Serious: Yes (Other)
  Sender: FDA-Public Use
  Company Number: NVSC2020DE335938

PATIENT
  Sex: Female

DRUGS (1)
  1. SIMBRINZA [Suspect]
     Active Substance: BRIMONIDINE TARTRATE\BRINZOLAMIDE
     Indication: GLAUCOMA
     Dosage: UNK ( 1?0?1)
     Route: 065

REACTIONS (9)
  - Conjunctivitis [Unknown]
  - Cough [Unknown]
  - Nausea [Unknown]
  - Cataract [Unknown]
  - Fatigue [Unknown]
  - Palpitations [Unknown]
  - Dyschromatopsia [Unknown]
  - Dry eye [Unknown]
  - Abdominal pain upper [Unknown]

NARRATIVE: CASE EVENT DATE: 2018
